FAERS Safety Report 8620973-0 (Version None)
Quarter: 2012Q3

REPORT INFORMATION
  Report Type: 
  Country: None (occurrence: None)
  Receive Date: 20120824
  Receipt Date: 20120814
  Transmission Date: 20120928
  Serious: No
  Sender: FDA-Public Use
  Company Number: US-ELI_LILLY_AND_COMPANY-US201111007275

PATIENT
  Sex: Female

DRUGS (2)
  1. FORTEO [Suspect]
     Dosage: 20 UG, QD
     Route: 065
  2. FORTEO [Suspect]
     Indication: OSTEOPOROSIS
     Dosage: 20 UG, QD
     Route: 065
     Dates: start: 20111019

REACTIONS (6)
  - FATIGUE [None]
  - FEELING ABNORMAL [None]
  - PAIN [None]
  - SENSATION OF HEAVINESS [None]
  - BACK PAIN [None]
  - GAIT DISTURBANCE [None]
